FAERS Safety Report 7224735-0 (Version None)
Quarter: 2011Q1

REPORT INFORMATION
  Report Type: 
  Country: None (occurrence: None)
  Receive Date: 20110113
  Receipt Date: 20101222
  Transmission Date: 20110831
  Serious: Yes (Hospitalization, Other)
  Sender: FDA-Public Use
  Company Number: US-PFIZER INC-US-WYE-H14971610

PATIENT
  Sex: Female
  Weight: 68 kg

DRUGS (15)
  1. PREMARIN [Suspect]
     Dosage: 0.3 MG, 1X/2 DAY
     Route: 065
  2. PROGESTERONE [Concomitant]
     Route: 065
  3. PREMARIN [Suspect]
     Dosage: 0.3MG DAILY, TAPERED TO OVERYOTHER DAY, THEN EVERY 2 DAYS
     Route: 065
  4. AMITRIPTYLINE [Concomitant]
     Route: 065
  5. SOMA [Concomitant]
     Route: 065
  6. ZANTAC [Concomitant]
     Route: 065
  7. PREMARIN [Suspect]
     Dosage: 0.3 MG, 1X/DAY
     Route: 065
  8. VITAMIN E [Concomitant]
     Route: 065
  9. PREMARIN [Suspect]
     Indication: HORMONE REPLACEMENT THERAPY
     Dosage: 2.5 MG, 1X/DAY
     Route: 065
  10. PREMARIN [Suspect]
     Dosage: 1.25 MG, 1X/DAY
     Route: 065
  11. CELEBREX [Suspect]
     Indication: OSTEOARTHRITIS
     Dosage: 200 MG, 3X/DAY
     Route: 065
  12. NEURONTIN [Concomitant]
     Route: 065
  13. VICODIN [Concomitant]
     Route: 065
  14. BEXTRA [Suspect]
     Indication: OSTEOARTHRITIS
     Dosage: UNK
     Route: 065
  15. LISINOPRIL [Concomitant]
     Route: 065

REACTIONS (6)
  - THINKING ABNORMAL [None]
  - DRUG WITHDRAWAL SYNDROME [None]
  - GASTROINTESTINAL HAEMORRHAGE [None]
  - ACTIVITIES OF DAILY LIVING IMPAIRED [None]
  - RECTAL HAEMORRHAGE [None]
  - DIABETES MELLITUS [None]
